FAERS Safety Report 10586728 (Version 1)
Quarter: 2014Q4

REPORT INFORMATION
  Report Type: Spontaneous
  Country: US (occurrence: None)
  Receive Date: 20141114
  Receipt Date: 20141114
  Transmission Date: 20150529
  Serious: Yes (Other)
  Sender: FDA-Public Use
  Company Number: None

PATIENT
  Age: 32 Year
  Sex: Female
  Weight: 94.8 kg

DRUGS (1)
  1. PHENTERMINE [Suspect]
     Active Substance: PHENTERMINE
     Indication: WEIGHT DECREASED
     Dosage: 1 TAB, ONCE DAILY, TAKEN BY MOUTH
     Route: 048

REACTIONS (7)
  - Head discomfort [None]
  - Hyperhidrosis [None]
  - Blood pressure increased [None]
  - Burning sensation [None]
  - Chest discomfort [None]
  - Musculoskeletal pain [None]
  - Nausea [None]

NARRATIVE: CASE EVENT DATE: 20141112
